FAERS Safety Report 20973826 (Version 3)
Quarter: 2022Q4

REPORT INFORMATION
  Report Type: Report from Study
  Country: US (occurrence: US)
  Receive Date: 20220617
  Receipt Date: 20221007
  Transmission Date: 20230113
  Serious: No
  Sender: FDA-Public Use
  Company Number: US-NOVARTISTESTPH-NVSC2022US138798

PATIENT
  Sex: Female

DRUGS (1)
  1. COSENTYX [Suspect]
     Active Substance: SECUKINUMAB
     Indication: Psoriasis
     Dosage: 300 MG (PATIENT HAD NOT TAKEN FOR 6 MONTHS)
     Route: 058

REACTIONS (4)
  - Symptom recurrence [Unknown]
  - Nightmare [Unknown]
  - Skin disorder [Unknown]
  - Condition aggravated [Unknown]
